FAERS Safety Report 25518131 (Version 2)
Quarter: 2025Q3

REPORT INFORMATION
  Report Type: Spontaneous
  Country: EU (occurrence: EU)
  Receive Date: 20250704
  Receipt Date: 20250711
  Transmission Date: 20251020
  Serious: Yes (Other)
  Sender: SANDOZ
  Company Number: EU-SANDOZ-SDZ2023DE069746

PATIENT
  Sex: Male

DRUGS (6)
  1. CYCLOPHOSPHAMIDE [Suspect]
     Active Substance: CYCLOPHOSPHAMIDE
     Indication: Burkitt^s lymphoma
     Route: 064
  2. DOXORUBICIN [Suspect]
     Active Substance: DOXORUBICIN
     Indication: Burkitt^s lymphoma
     Route: 064
  3. ETOPOSIDE [Suspect]
     Active Substance: ETOPOSIDE
     Indication: Burkitt^s lymphoma
     Route: 064
  4. PREDNISOLONE [Suspect]
     Active Substance: PREDNISOLONE
     Indication: Burkitt^s lymphoma
     Route: 064
  5. RITUXIMAB [Suspect]
     Active Substance: RITUXIMAB
     Indication: Burkitt^s lymphoma
     Route: 064
  6. VINCRISTINE [Suspect]
     Active Substance: VINCRISTINE
     Indication: Burkitt^s lymphoma
     Route: 064

REACTIONS (3)
  - Hypogammaglobulinaemia [Unknown]
  - Premature baby [Unknown]
  - Foetal exposure during pregnancy [Unknown]
